FAERS Safety Report 7810526-6 (Version None)
Quarter: 2011Q4

REPORT INFORMATION
  Report Type: 
  Country: None (occurrence: None)
  Receive Date: 20111013
  Receipt Date: 20111004
  Transmission Date: 20120403
  Serious: Yes (Hospitalization)
  Sender: FDA-Public Use
  Company Number: US-BIOGENIDEC-2011BI015072

PATIENT
  Age: 41 Year
  Sex: Female

DRUGS (2)
  1. HYDROCHLOROTHIAZIDE [Concomitant]
     Indication: HYPERTENSION
     Dates: start: 20070101
  2. TYSABRI [Suspect]
     Indication: MULTIPLE SCLEROSIS
     Route: 042
     Dates: start: 20080201

REACTIONS (4)
  - OEDEMA PERIPHERAL [None]
  - SEPSIS [None]
  - THERMAL BURN [None]
  - DEPRESSED LEVEL OF CONSCIOUSNESS [None]
